FAERS Safety Report 10554692 (Version 1)
Quarter: 2014Q4

REPORT INFORMATION
  Report Type: Report from Study
  Country: QA (occurrence: QA)
  Receive Date: 20141030
  Receipt Date: 20141030
  Transmission Date: 20150529
  Serious: Yes (Death)
  Sender: FDA-Public Use
  Company Number: QA-SA-2014SA148301

PATIENT
  Age: 60 Year
  Sex: Male
  Weight: 75 kg

DRUGS (9)
  1. FRUSEMIDE [Concomitant]
     Active Substance: FUROSEMIDE
     Dates: start: 20130410
  2. PLAVIX [Suspect]
     Active Substance: CLOPIDOGREL BISULFATE
     Indication: ACUTE CORONARY SYNDROME
     Route: 048
     Dates: start: 20130410, end: 20130410
  3. ISOSORBIDE DINITRATE. [Concomitant]
     Active Substance: ISOSORBIDE DINITRATE
     Dosage: DOSE:25 MICROGRAM(S)/MILLILITRE
     Dates: start: 20130410, end: 20130410
  4. METOPROLOL [Concomitant]
     Active Substance: METOPROLOL
     Dates: start: 20130410
  5. PLAVIX [Suspect]
     Active Substance: CLOPIDOGREL BISULFATE
     Indication: ACUTE CORONARY SYNDROME
     Route: 048
     Dates: start: 20130410, end: 20130723
  6. ENALAPRIL [Concomitant]
     Active Substance: ENALAPRIL
     Dates: start: 20130410
  7. ASPIRIN. [Concomitant]
     Active Substance: ASPIRIN
     Dates: start: 20130410
  8. ATORVASTATIN [Concomitant]
     Active Substance: ATORVASTATIN
     Dates: start: 20130410
  9. EPTIFIBATIDE [Concomitant]
     Active Substance: EPTIFIBATIDE

REACTIONS (3)
  - Thrombosis in device [Fatal]
  - Myocardial infarction [Fatal]
  - Gastrointestinal haemorrhage [Fatal]

NARRATIVE: CASE EVENT DATE: 20130723
